FAERS Safety Report 8333125-9 (Version None)
Quarter: 2012Q2

REPORT INFORMATION
  Report Type: 
  Country: None (occurrence: None)
  Receive Date: 20120503
  Receipt Date: 20120425
  Transmission Date: 20120825
  Serious: Yes (Hospitalization, Other)
  Sender: FDA-Public Use
  Company Number: JP-VERTEX PHARMACEUTICALS INC.-AE-2012-003684

PATIENT
  Age: 66 Year
  Sex: Female

DRUGS (17)
  1. RIBAVIRIN [Concomitant]
     Route: 048
     Dates: start: 20120227, end: 20120301
  2. FUNGIZONE [Concomitant]
     Route: 048
     Dates: start: 20120214
  3. TELAVIC (TELAPREVIR) [Suspect]
     Indication: HEPATITIS C
     Route: 048
     Dates: start: 20120124, end: 20120212
  4. RIBAVIRIN [Concomitant]
     Route: 048
     Dates: start: 20120220, end: 20120226
  5. URSO 250 [Concomitant]
     Route: 048
  6. PEGINTERFERON ALFA-2B [Concomitant]
     Route: 051
     Dates: start: 20120312, end: 20120408
  7. PEGINTERFERON ALFA-2B [Concomitant]
     Route: 051
     Dates: start: 20120409
  8. RIBAVIRIN [Concomitant]
     Route: 048
     Dates: start: 20120312
  9. VOLTAREN [Concomitant]
     Route: 054
     Dates: start: 20120124
  10. TELAVIC (TELAPREVIR) [Suspect]
     Route: 048
     Dates: start: 20120312
  11. SELBEX [Concomitant]
     Route: 048
     Dates: start: 20120125
  12. MOTILIUM [Concomitant]
     Route: 048
     Dates: start: 20120223
  13. RIBAVIRIN [Concomitant]
     Indication: HEPATITIS C
     Route: 048
     Dates: start: 20120124, end: 20120219
  14. VOLTAREN-XR [Concomitant]
     Route: 048
     Dates: start: 20120125
  15. TOUGHMAC E [Concomitant]
     Dates: start: 20120125
  16. TELAVIC (TELAPREVIR) [Suspect]
     Route: 048
     Dates: start: 20120213, end: 20120301
  17. PEGINTERFERON ALFA-2B [Concomitant]
     Indication: HEPATITIS C
     Route: 051
     Dates: start: 20120124, end: 20120302

REACTIONS (2)
  - ANAEMIA [None]
  - DECREASED APPETITE [None]
